FAERS Safety Report 7062136-9 (Version None)
Quarter: 2010Q4

REPORT INFORMATION
  Report Type: 
  Country: None (occurrence: None)
  Receive Date: 20101026
  Receipt Date: 20101021
  Transmission Date: 20110411
  Serious: Yes (Death, Other)
  Sender: FDA-Public Use
  Company Number: PHHY2010US71096

PATIENT

DRUGS (1)
  1. ZOMETA [Suspect]
     Dosage: 4 MG
     Route: 042

REACTIONS (2)
  - DEATH [None]
  - GASTROINTESTINAL HAEMORRHAGE [None]
